FAERS Safety Report 10050788 (Version 1)
Quarter: 2014Q2

REPORT INFORMATION
  Report Type: Spontaneous
  Country: US (occurrence: US)
  Receive Date: 20140401
  Receipt Date: 20140401
  Transmission Date: 20141212
  Serious: No
  Sender: FDA-Public Use
  Company Number: US-ASTRAZENECA-2013SE74714

PATIENT
  Age: 71 Year
  Sex: Female
  Weight: 62.1 kg

DRUGS (6)
  1. NEXIUM [Suspect]
     Indication: GASTROOESOPHAGEAL REFLUX DISEASE
     Route: 048
     Dates: start: 2001
  2. LEVOYTHYROXINE [Concomitant]
     Indication: THYROID DISORDER
     Route: 048
     Dates: start: 2010
  3. LEXAPRO [Concomitant]
     Indication: DEPRESSION
     Route: 048
     Dates: start: 2010
  4. XANAX [Concomitant]
     Indication: SLEEP DISORDER
     Route: 048
  5. VIT D [Concomitant]
     Indication: VITAMIN SUPPLEMENTATION
     Dosage: DAILY
     Route: 048
  6. CALCIUM [Concomitant]
     Indication: VITAMIN SUPPLEMENTATION
     Dosage: DAILY
     Route: 048

REACTIONS (9)
  - Irritable bowel syndrome [Unknown]
  - Osteoporosis [Unknown]
  - Body height decreased [Unknown]
  - Weight decreased [Unknown]
  - Hypothyroidism [Unknown]
  - Depression [Unknown]
  - Constipation [Unknown]
  - Diarrhoea [Recovered/Resolved]
  - Intentional product misuse [Unknown]
